FAERS Safety Report 7564657-9 (Version None)
Quarter: 2011Q2

REPORT INFORMATION
  Report Type: 
  Country: None (occurrence: None)
  Receive Date: 20110622
  Receipt Date: 20100923
  Transmission Date: 20111010
  Serious: Yes (Other)
  Sender: FDA-Public Use
  Company Number: US-MYLANLABS-2010S1014309

PATIENT
  Age: 53 Year
  Sex: Female
  Weight: 53.52 kg

DRUGS (6)
  1. CLOZAPINE [Suspect]
     Indication: DELUSION
     Route: 048
     Dates: start: 20071108, end: 20100824
  2. VANTIN [Suspect]
     Indication: INFECTION
     Route: 048
     Dates: start: 20100803
  3. CLOZAPINE [Suspect]
     Indication: SCHIZOAFFECTIVE DISORDER BIPOLAR TYPE
     Route: 048
     Dates: start: 20071108, end: 20100824
  4. CEFPODOXIME PROXETIL [Concomitant]
     Indication: UPPER RESPIRATORY TRACT INFECTION
  5. LEVOTHYROXINE SODIUM [Concomitant]
     Route: 048
  6. ABILIFY [Concomitant]
     Route: 048

REACTIONS (2)
  - LEUKOPENIA [None]
  - GRANULOCYTOPENIA [None]
